FAERS Safety Report 9189493 (Version 2)
Quarter: 2013Q3

REPORT INFORMATION
  Report Type: Report from Study
  Country: BR (occurrence: BR)
  Receive Date: 20130326
  Receipt Date: 20130805
  Transmission Date: 20140515
  Serious: Yes (Hospitalization, Other)
  Sender: FDA-Public Use
  Company Number: PHHY2013BR028564

PATIENT
  Age: 84 Year
  Sex: Male
  Weight: 60 kg

DRUGS (11)
  1. DIOVAN [Suspect]
     Indication: HYPERTENSION
     Dosage: 80MG, DAILY
     Route: 048
  2. DIOVAN [Suspect]
     Dosage: 160 MG,DAILY
     Route: 048
  3. SPIRIVA RESPIMAT [Concomitant]
     Indication: EMPHYSEMA
     Dosage: 2 DF, QD (IN THE MORNING)
  4. SERETIDE [Concomitant]
     Indication: EMPHYSEMA
     Dosage: 2 DF, BID (25MCG FLUT/125MCG SALM) (2 APPLICATIONS IN THE MORNING AND 2 APPLICATIONS AT NIGHT)
  5. AEROLIN [Concomitant]
     Indication: EMPHYSEMA
     Dosage: 1 DF, TID (1 APPLICATION IN THE MORNING, 1 APPLICATION IN THE AFTERNOON AND 1 APPLICATION AT NIGHT)
  6. BAMIFIX [Concomitant]
     Indication: DYSPNOEA
     Dosage: 300 MG, BID (1 TABLET IN THE MORNING AND 1 TABLET AT NIGHT)
     Route: 048
  7. PONDERA [Concomitant]
     Indication: ANXIETY
     Dosage: 15MG, QD (IN THE MORNING)
     Route: 048
  8. INDAPIN SR [Concomitant]
     Indication: POLYURIA
     Dosage: 1.5 MG, QD(1 TABLET IN THE MORNING)
     Route: 048
  9. PREDNISONE [Concomitant]
     Indication: EMPHYSEMA
     Dosage: 0.5 DF(20MG), DAILY
     Route: 048
     Dates: start: 201212
  10. AZITHROMYCIN [Concomitant]
     Indication: ANTIINFLAMMATORY THERAPY
     Dosage: 0.5 DF (500MG) HALF TABLET ON MONDAY, HALF TABLET ON WEDNESDAY ANDHALF TABLET ON FRIDAY
     Dates: start: 2011
  11. OMEPRAZOLE [Concomitant]
     Indication: ABDOMINAL DISCOMFORT
     Dosage: 20 MG, BID(1 CAPSULE IN THE MORNING AND 1 CAPSULE AT NIGJHT)

REACTIONS (5)
  - Emphysema [Recovered/Resolved]
  - Blood pressure increased [Recovered/Resolved]
  - Nasopharyngitis [Not Recovered/Not Resolved]
  - Lacrimation increased [Recovered/Resolved]
  - Headache [Recovered/Resolved]
